FAERS Safety Report 18526279 (Version 2)
Quarter: 2020Q4

REPORT INFORMATION
  Report Type: Report from Study
  Country: MX (occurrence: MX)
  Receive Date: 20201120
  Receipt Date: 20201126
  Transmission Date: 20210114
  Serious: Yes (Death)
  Sender: FDA-Public Use
  Company Number: NVSC2020MX309707

PATIENT
  Age: 82 Year
  Sex: Male
  Weight: 61 kg

DRUGS (5)
  1. SENNOSIDA A + B [Concomitant]
     Indication: ABDOMINAL HERNIA
     Dosage: 2 DF (AT NIGHT)
     Route: 048
  2. IMATINIB. [Suspect]
     Active Substance: IMATINIB MESYLATE
     Indication: CHRONIC MYELOID LEUKAEMIA
     Dosage: 100 MG, BID (IN MORNING AND AT NIGHT)
     Route: 048
     Dates: start: 2019, end: 2019
  3. ERYTHROPOIETIN [Concomitant]
     Active Substance: ERYTHROPOIETIN
     Indication: ANAEMIA
     Dosage: UNK UNK, QW (3 APPLICATIONS)
     Route: 058
     Dates: start: 202007
  4. HYDREA [Concomitant]
     Active Substance: HYDROXYUREA
     Indication: CHRONIC MYELOID LEUKAEMIA
     Dosage: 1 DF
     Route: 048
     Dates: start: 2017, end: 2019
  5. TASIGNA [Suspect]
     Active Substance: NILOTINIB
     Indication: CHRONIC MYELOID LEUKAEMIA
     Dosage: 400 MG, BID (EVERY 12 HOURS)
     Route: 048
     Dates: start: 20191003

REACTIONS (5)
  - Headache [Unknown]
  - Chronic myeloid leukaemia [Fatal]
  - Dyspnoea [Unknown]
  - Chronic obstructive pulmonary disease [Fatal]
  - Fatigue [Unknown]

NARRATIVE: CASE EVENT DATE: 20201012
